FAERS Safety Report 17322673 (Version 1)
Quarter: 2020Q1

REPORT INFORMATION
  Report Type: Other
  Country: US (occurrence: US)
  Receive Date: 20200127
  Receipt Date: 20200127
  Transmission Date: 20200409
  Serious: No
  Sender: FDA-Public Use
  Company Number: US-ACORDA-ACO_162271_2019

PATIENT
  Sex: Female

DRUGS (2)
  1. AMPYRA [Suspect]
     Active Substance: DALFAMPRIDINE
     Dosage: 10 MILLIGRAM, QD
     Route: 065
  2. AMPYRA [Suspect]
     Active Substance: DALFAMPRIDINE
     Indication: PRODUCT USED FOR UNKNOWN INDICATION
     Dosage: 2 TABLETS, QD
     Route: 065
     Dates: start: 201901

REACTIONS (9)
  - Hemiparesis [Unknown]
  - Paraesthesia [Unknown]
  - Secondary progressive multiple sclerosis [Unknown]
  - Tremor [Unknown]
  - Gait disturbance [Unknown]
  - Multiple sclerosis [Unknown]
  - Product prescribing error [Unknown]
  - Neuropathy peripheral [Unknown]
  - Dizziness [Unknown]
